FAERS Safety Report 9229635 (Version 4)
Quarter: 2013Q3

REPORT INFORMATION
  Report Type: Report from Study
  Country: GB (occurrence: GB)
  Receive Date: 20130415
  Receipt Date: 20130816
  Transmission Date: 20140515
  Serious: Yes (Other)
  Sender: FDA-Public Use
  Company Number: GB-AMGEN-GBRCT2013025546

PATIENT
  Age: 64 Year
  Sex: Male

DRUGS (2)
  1. ETANERCEPT [Suspect]
     Indication: RHEUMATOID ARTHRITIS
     Dosage: 25 MG, 2 TIMES/WK
     Route: 065
     Dates: start: 20080815, end: 20080915
  2. SULPHASALAZINE [Concomitant]
     Dosage: UNK
     Dates: start: 20091203

REACTIONS (1)
  - Prostate cancer [Unknown]
